FAERS Safety Report 8950865 (Version 1)
Quarter: 2012Q4

REPORT INFORMATION
  Report Type: Spontaneous
  Country: US (occurrence: None)
  Receive Date: 20121130
  Receipt Date: 20121130
  Transmission Date: 20130627
  Serious: Yes (Other)
  Sender: FDA-Public Use
  Company Number: None

PATIENT
  Age: 52 Year
  Sex: Female
  Weight: 90.72 kg

DRUGS (6)
  1. AMPYRA [Suspect]
     Indication: RELAPSING-REMITTING MULTIPLE SCLEROSIS
     Dates: start: 20121116, end: 20121128
  2. GILENYA [Concomitant]
  3. VITAMIN D3 [Concomitant]
  4. MAGNESIUM [Concomitant]
  5. RASBERRY KETONES [Concomitant]
  6. METAXALONE [Concomitant]

REACTIONS (3)
  - Hypersensitivity [None]
  - Urticaria [None]
  - Pruritus [None]
